FAERS Safety Report 6389917-9 (Version None)
Quarter: 2009Q4

REPORT INFORMATION
  Report Type: 
  Country: None (occurrence: None)
  Receive Date: 20091006
  Receipt Date: 20090401
  Transmission Date: 20100525
  Serious: No
  Sender: FDA-Public Use
  Company Number: US-BRISTOL-MYERS SQUIBB COMPANY-14573992

PATIENT
  Sex: Female

DRUGS (6)
  1. AVAPRO [Suspect]
  2. ATENOLOL [Suspect]
  3. CARDIZEM [Suspect]
  4. INDERAL [Suspect]
  5. LOTREL [Suspect]
  6. BLOCADREN [Suspect]

REACTIONS (3)
  - ABDOMINAL DISCOMFORT [None]
  - HEADACHE [None]
  - MALAISE [None]
